FAERS Safety Report 17531360 (Version 1)
Quarter: 2020Q1

REPORT INFORMATION
  Report Type: Spontaneous
  Country: US (occurrence: US)
  Receive Date: 20200311
  Receipt Date: 20200311
  Transmission Date: 20200409
  Serious: Yes (Other)
  Sender: FDA-Public Use
  Company Number: US-ASTRAZENECA-2018SE85712

PATIENT
  Age: 16672 Day
  Sex: Female
  Weight: 113.4 kg

DRUGS (33)
  1. WARFARIN [Concomitant]
     Active Substance: WARFARIN
     Route: 065
  2. VITAMIN D [Concomitant]
     Active Substance: VITAMIN D NOS
     Route: 065
  3. CYCLOBENZAPRINE. [Concomitant]
     Active Substance: CYCLOBENZAPRINE
     Route: 065
  4. GENTAMICIN. [Concomitant]
     Active Substance: GENTAMICIN
     Route: 065
  5. PROTONIX [Suspect]
     Active Substance: PANTOPRAZOLE SODIUM
     Indication: GASTROOESOPHAGEAL REFLUX DISEASE
     Dosage: GRANULE40.0MG UNKNOWN
     Route: 065
     Dates: start: 20160919
  6. MILK OF MAGNESIA [Concomitant]
     Active Substance: MAGNESIUM HYDROXIDE
     Route: 065
  7. MECLIZINE [Concomitant]
     Active Substance: MECLIZINE HYDROCHLORIDE
     Route: 065
  8. MIDODRINE [Concomitant]
     Active Substance: MIDODRINE
     Route: 065
  9. CYANOCOBALAMIN. [Concomitant]
     Active Substance: CYANOCOBALAMIN
     Indication: NEUROPATHY PERIPHERAL
     Route: 065
  10. ALPRAZOLAM. [Concomitant]
     Active Substance: ALPRAZOLAM
     Route: 065
  11. CLOTRIMAZOLE. [Concomitant]
     Active Substance: CLOTRIMAZOLE
     Route: 065
  12. INSULIN GLARGINE [Concomitant]
     Active Substance: INSULIN GLARGINE
     Indication: DIABETES MELLITUS
     Route: 065
  13. TRAMADOL. [Concomitant]
     Active Substance: TRAMADOL
     Route: 065
  14. PROTONIX [Suspect]
     Active Substance: PANTOPRAZOLE SODIUM
     Indication: GASTROOESOPHAGEAL REFLUX DISEASE
     Route: 065
     Dates: start: 201001, end: 201708
  15. TRIAMTERENE. [Concomitant]
     Active Substance: TRIAMTERENE
     Route: 065
  16. HYDROCODONE BITARTRATE AND ACETAMINOPHEN [Concomitant]
     Active Substance: ACETAMINOPHEN\HYDROCODONE BITARTRATE
     Route: 065
  17. COLLAGENASE SANTYL [Concomitant]
     Active Substance: COLLAGENASE CLOSTRIDIUM HISTOLYTICUM
     Route: 065
  18. NEXIUM 24HR [Suspect]
     Active Substance: ESOMEPRAZOLE MAGNESIUM
     Indication: GASTROOESOPHAGEAL REFLUX DISEASE
     Route: 048
     Dates: start: 2014, end: 2016
  19. CEPHALEXIN. [Concomitant]
     Active Substance: CEPHALEXIN
     Indication: EMPHYSEMATOUS PYELONEPHRITIS
     Route: 065
  20. FUROSEMIDE. [Concomitant]
     Active Substance: FUROSEMIDE
     Route: 065
  21. LYRICA [Concomitant]
     Active Substance: PREGABALIN
     Route: 065
  22. COMBIVENT [Concomitant]
     Active Substance: ALBUTEROL SULFATE\IPRATROPIUM BROMIDE
     Route: 065
  23. NYSTATIN. [Concomitant]
     Active Substance: NYSTATIN
     Route: 065
  24. BETAMETHASONE. [Concomitant]
     Active Substance: BETAMETHASONE
     Route: 065
  25. DULOXETINE. [Concomitant]
     Active Substance: DULOXETINE
     Route: 065
  26. PROTONIX [Suspect]
     Active Substance: PANTOPRAZOLE SODIUM
     Indication: GASTROOESOPHAGEAL REFLUX DISEASE
     Dosage: GENERIC40.0MG UNKNOWN
     Route: 065
     Dates: start: 20160101, end: 20170803
  27. MONTELUKAST [Concomitant]
     Active Substance: MONTELUKAST SODIUM
     Route: 065
  28. GLYBURIDE. [Concomitant]
     Active Substance: GLYBURIDE
     Route: 065
  29. LIDOCAINE. [Concomitant]
     Active Substance: LIDOCAINE
     Route: 065
  30. SUCRALFATE. [Concomitant]
     Active Substance: SUCRALFATE
     Route: 065
  31. PROTONIX [Suspect]
     Active Substance: PANTOPRAZOLE SODIUM
     Indication: GASTROOESOPHAGEAL REFLUX DISEASE
     Dosage: 40.0MG UNKNOWN
     Route: 065
     Dates: start: 20160705
  32. ALBUTEROL. [Concomitant]
     Active Substance: ALBUTEROL
     Indication: BRONCHOSPASM
     Route: 065
  33. ONDANSETRON [Concomitant]
     Active Substance: ONDANSETRON
     Route: 065

REACTIONS (3)
  - Acute kidney injury [Not Recovered/Not Resolved]
  - Renal tubular necrosis [Unknown]
  - Renal failure [Unknown]

NARRATIVE: CASE EVENT DATE: 20160404
